FAERS Safety Report 9909423 (Version 1)
Quarter: 2014Q1

REPORT INFORMATION
  Report Type: Spontaneous
  Country: NL (occurrence: NL)
  Receive Date: 20140219
  Receipt Date: 20140219
  Transmission Date: 20141002
  Serious: Yes (Other)
  Sender: FDA-Public Use
  Company Number: NL-AMGEN-NLDSP2014010866

PATIENT
  Age: 70 Year
  Sex: Male
  Weight: 83 kg

DRUGS (5)
  1. XGEVA [Suspect]
     Indication: PROSTATE CANCER METASTATIC
     Dosage: UNK
     Route: 065
     Dates: start: 20130426, end: 201402
  2. CALCI CHEW [Concomitant]
  3. PREDNISOLONE [Concomitant]
  4. ELIGARD [Concomitant]
  5. VALSARTAN [Concomitant]

REACTIONS (1)
  - Osteonecrosis of jaw [Unknown]
